FAERS Safety Report 20994214 (Version 1)
Quarter: 2022Q2

REPORT INFORMATION
  Report Type: Spontaneous
  Country: PL (occurrence: PL)
  Receive Date: 20220622
  Receipt Date: 20220622
  Transmission Date: 20220720
  Serious: Yes (Hospitalization, Other)
  Sender: FDA-Public Use
  Company Number: PL-KRKA-PL2022K07008LIT

PATIENT
  Age: 62 Year
  Sex: Male

DRUGS (8)
  1. RIVASTIGMINE [Suspect]
     Active Substance: RIVASTIGMINE
     Indication: Parkinson^s disease
     Dosage: 9.5 MILLIGRAM, QD (9.5 MG, PER DAY)
     Route: 062
  2. RIVASTIGMINE [Suspect]
     Active Substance: RIVASTIGMINE
     Dosage: 4.6 MILLIGRAM, QD (4.6 MG, PER DAY)
     Route: 062
  3. RASAGILINE MESYLATE [Suspect]
     Active Substance: RASAGILINE MESYLATE
     Indication: Parkinson^s disease
     Dosage: 1 MILLIGRAM, AM (1 MG, PER DAY IN THE MORNING)
  4. CARBIDOPA\LEVODOPA [Suspect]
     Active Substance: CARBIDOPA\LEVODOPA
     Indication: Parkinson^s disease
     Dosage: ENTERIC INFUSIONS
  5. CARBIDOPA\LEVODOPA [Suspect]
     Active Substance: CARBIDOPA\LEVODOPA
     Dosage: MORNING 7.0 ML, CONTINUOUS DOSE 4.6 ML / H, DOSE
  6. BENSERAZIDE HYDROCHLORIDE\LEVODOPA [Suspect]
     Active Substance: BENSERAZIDE HYDROCHLORIDE\LEVODOPA
     Indication: Parkinson^s disease
     Dosage: 1100 MILLIGRAM, QD (MADOPAR 250 MG 4 X/D. IN HOURS)
  7. AMANTADINE [Suspect]
     Active Substance: AMANTADINE
     Indication: Parkinson^s disease
     Dosage: 300 MILLIGRAM, QD (300 MG, PER DAY)
  8. QUETIAPINE [Concomitant]
     Active Substance: QUETIAPINE
     Indication: Hallucination, visual
     Dosage: 100 MILLIGRAM, QD (100 MG, PER DAY, 25 MG IN THE MORNING AND 75 MG IN THE EVENING)

REACTIONS (3)
  - Drug ineffective [Recovering/Resolving]
  - Hallucination, visual [Recovered/Resolved]
  - Orthostatic hypotension [Unknown]
